FAERS Safety Report 5357537-0 (Version None)
Quarter: 2007Q2

REPORT INFORMATION
  Report Type: 
  Country: None (occurrence: None)
  Receive Date: 20070614
  Receipt Date: 20070601
  Transmission Date: 20071010
  Serious: Yes (Hospitalization)
  Sender: FDA-Public Use
  Company Number: US-ELI_LILLY_AND_COMPANY-US200706002169

PATIENT
  Age: 36 Year
  Sex: Male

DRUGS (7)
  1. FLUOXETINE HYDROCHLORIDE [Suspect]
     Dosage: 20 MG, DAILY (1/D)
     Route: 048
  2. CLOZAPINE [Concomitant]
     Indication: SCHIZOPHRENIA, PARANOID TYPE
     Dosage: 200 MG, 2/D
  3. HALOPERIDOL [Concomitant]
  4. QUETIAPINE [Concomitant]
  5. LORAZEPAM [Concomitant]
  6. DIPHENHYDRAMINE HCL [Concomitant]
  7. BENZATROPINE [Concomitant]

REACTIONS (2)
  - DRUG INTERACTION [None]
  - DRUG TOXICITY [None]
